FAERS Safety Report 12194587 (Version 1)
Quarter: 2016Q1

REPORT INFORMATION
  Report Type: Spontaneous
  Country: US (occurrence: None)
  Receive Date: 20160318
  Receipt Date: 20160318
  Transmission Date: 20160526
  Serious: No
  Sender: FDA-Public Use
  Company Number: None

PATIENT
  Age: 51 Year
  Sex: Male

DRUGS (1)
  1. VIVITROL [Suspect]
     Active Substance: NALTREXONE
     Indication: ALCOHOLISM
     Dosage: EVERY 28 DAYS
     Route: 030
     Dates: start: 20150414, end: 201602

REACTIONS (4)
  - Lethargy [None]
  - Loss of libido [None]
  - Migraine [None]
  - Pain [None]
